FAERS Safety Report 11215842 (Version 1)
Quarter: 2015Q2

REPORT INFORMATION
  Report Type: Spontaneous
  Country: DE (occurrence: None)
  Receive Date: 20150622
  Receipt Date: 20150622
  Transmission Date: 20150821
  Serious: Yes (Hospitalization)
  Sender: FDA-Public Use
  Company Number: DE-H14001-15-00956

PATIENT
  Age: 61 Year
  Sex: Female

DRUGS (1)
  1. CIPROFLOXACIN (CIPROFLOXACIN) (UNKNOWN) (CIPROFLOXACIN) [Suspect]
     Active Substance: CIPROFLOXACIN
     Indication: PRODUCT USED FOR UNKNOWN INDICATION

REACTIONS (10)
  - Petechiae [None]
  - Thrombocytopenia [None]
  - Musculoskeletal pain [None]
  - Asthenia [None]
  - Rectal haemorrhage [None]
  - Toxicity to various agents [None]
  - Haematochezia [None]
  - Mediastinal mass [None]
  - C-reactive protein decreased [None]
  - Disseminated intravascular coagulation [None]
